FAERS Safety Report 6816890-9 (Version None)
Quarter: 2010Q3

REPORT INFORMATION
  Report Type: 
  Country: None (occurrence: None)
  Receive Date: 20100706
  Receipt Date: 20100625
  Transmission Date: 20110219
  Serious: Yes (Hospitalization)
  Sender: FDA-Public Use
  Company Number: IT-ASTRAZENECA-2010SE30061

PATIENT
  Age: 66 Year
  Sex: Male

DRUGS (8)
  1. MERREM [Suspect]
     Indication: ABDOMINAL ABSCESS
     Route: 042
     Dates: start: 20100305, end: 20100315
  2. CLEXANE T [Concomitant]
     Route: 058
     Dates: start: 20091209, end: 20100310
  3. LASIX [Concomitant]
     Route: 048
     Dates: start: 20091209, end: 20100310
  4. LUVION [Concomitant]
     Route: 048
     Dates: start: 20091209, end: 20100310
  5. CREON [Concomitant]
     Route: 048
     Dates: start: 20091209, end: 20100310
  6. MAG 2 [Concomitant]
     Route: 048
     Dates: start: 20091209, end: 20100310
  7. METOCAL [Concomitant]
     Route: 048
     Dates: start: 20091209, end: 20100310
  8. KCL RETARD [Concomitant]
     Route: 048
     Dates: start: 20091209, end: 20100310

REACTIONS (1)
  - HEPATIC FAILURE [None]
